FAERS Safety Report 7733159-9 (Version None)
Quarter: 2011Q3

REPORT INFORMATION
  Report Type: 
  Country: None (occurrence: None)
  Receive Date: 20110907
  Receipt Date: 20110902
  Transmission Date: 20111222
  Serious: Yes (Disabling)
  Sender: FDA-Public Use
  Company Number: GB-TEVA-299199ISR

PATIENT
  Age: 82 Year
  Sex: Female
  Weight: 70 kg

DRUGS (1)
  1. AMLODIPINE [Suspect]

REACTIONS (3)
  - SYNCOPE [None]
  - NAUSEA [None]
  - VISION BLURRED [None]
